FAERS Safety Report 21395852 (Version 1)
Quarter: 2022Q3

REPORT INFORMATION
  Report Type: Spontaneous
  Country: US (occurrence: None)
  Receive Date: 20220929
  Receipt Date: 20220929
  Transmission Date: 20221027
  Serious: Yes (Other)
  Sender: FDA-Public Use
  Company Number: None

PATIENT
  Age: 47 Year
  Sex: Female
  Weight: 60.75 kg

DRUGS (2)
  1. CRYSELLE [Suspect]
     Active Substance: ETHINYL ESTRADIOL\NORGESTREL
     Indication: Contraception
     Dosage: OTHER QUANTITY : 28 TABLET(S);?
     Route: 048
     Dates: start: 20220925, end: 20220929
  2. VITAMINS [Concomitant]
     Active Substance: VITAMINS

REACTIONS (4)
  - Diarrhoea [None]
  - Vaginal haemorrhage [None]
  - Muscle spasms [None]
  - Pain [None]

NARRATIVE: CASE EVENT DATE: 20220929
